FAERS Safety Report 22644970 (Version 1)
Quarter: 2023Q2

REPORT INFORMATION
  Report Type: Report from Study
  Country: TH (occurrence: TH)
  Receive Date: 20230627
  Receipt Date: 20230627
  Transmission Date: 20230721
  Serious: Yes (Death, Life-Threatening, Hospitalization)
  Sender: FDA-Public Use
  Company Number: TH-ELI_LILLY_AND_COMPANY-US202306014557

PATIENT
  Age: 60 Year
  Sex: Male
  Weight: 51 kg

DRUGS (20)
  1. PEMETREXED [Suspect]
     Active Substance: PEMETREXED
     Indication: Non-small cell lung cancer
     Dosage: 500 MG, SINGLE
     Route: 041
     Dates: start: 20220211, end: 20220527
  2. PEMETREXED [Suspect]
     Active Substance: PEMETREXED
     Dosage: 500 UNK
     Route: 042
     Dates: start: 20220624, end: 20220624
  3. PEMETREXED [Suspect]
     Active Substance: PEMETREXED
     Dosage: 500 UNK
     Route: 041
     Dates: start: 20220718, end: 20220718
  4. PEMETREXED [Suspect]
     Active Substance: PEMETREXED
     Dosage: 500 UNK
     Route: 041
     Dates: start: 20220805, end: 20220805
  5. CARBOPLATIN [Concomitant]
     Active Substance: CARBOPLATIN
     Indication: Non-small cell lung cancer
     Dosage: 5 MG, SINGLE
     Route: 041
     Dates: start: 20220211, end: 20220527
  6. ENALAPRIL [Concomitant]
     Active Substance: ENALAPRIL
     Indication: Product used for unknown indication
     Dosage: UNK, UNKNOWN
     Route: 065
     Dates: start: 20201106, end: 20220909
  7. MANIDIPINE [Concomitant]
     Active Substance: MANIDIPINE
     Indication: Product used for unknown indication
     Dosage: UNK
     Dates: start: 20210104
  8. FERROUS FUMARATE\FOLIC ACID\IODINE [Concomitant]
     Active Substance: FERROUS FUMARATE\FOLIC ACID\IODINE
     Indication: Product used for unknown indication
     Dosage: UNK
     Dates: start: 20220211, end: 20220916
  9. GABAPENTIN [Concomitant]
     Active Substance: GABAPENTIN
     Indication: Product used for unknown indication
     Dosage: UNK
     Dates: start: 20220218, end: 20220826
  10. MILK OF MAGNESIA [Concomitant]
     Active Substance: MAGNESIUM HYDROXIDE
     Indication: Product used for unknown indication
     Dosage: UNK
     Dates: start: 20220218, end: 20220625
  11. METOCLOPRAMIDE [Concomitant]
     Active Substance: METOCLOPRAMIDE
     Indication: Product used for unknown indication
     Dosage: UNK
     Dates: start: 20220506, end: 20220607
  12. MORPHINE [Concomitant]
     Active Substance: MORPHINE
     Indication: Product used for unknown indication
     Dosage: UNK
     Dates: start: 20220506, end: 20220624
  13. DEXAMETHASONE [Concomitant]
     Active Substance: DEXAMETHASONE
     Indication: Premedication
     Dosage: UNK
     Dates: start: 20220526, end: 20220624
  14. CHLORPHENIRAMINE [Concomitant]
     Active Substance: CHLORPHENIRAMINE
     Indication: Prophylaxis
     Dosage: UNK
     Dates: start: 20220527, end: 20220610
  15. FLUOCINOLONE ACETONIDE [Concomitant]
     Active Substance: FLUOCINOLONE ACETONIDE
     Indication: Product used for unknown indication
     Dosage: UNK
     Dates: start: 20220608, end: 20220614
  16. ONDANSETRON [Concomitant]
     Active Substance: ONDANSETRON
     Indication: Prophylaxis
     Dosage: UNK
     Dates: start: 20220527, end: 20220531
  17. ONDANSETRON [Concomitant]
     Active Substance: ONDANSETRON
     Indication: Premedication
  18. MAGNESIUM SULFATE [Concomitant]
     Active Substance: MAGNESIUM SULFATE
     Indication: Product used for unknown indication
     Dosage: UNK
     Dates: start: 20220608, end: 20220612
  19. KCL [Concomitant]
     Active Substance: POTASSIUM CHLORIDE
     Indication: Product used for unknown indication
     Dosage: UNK
     Dates: start: 20220610, end: 20220614
  20. PHOSPHATE [PHOSPHORIC ACID SODIUM;SODIUM PHOS [Concomitant]
     Indication: Product used for unknown indication
     Dosage: UNK
     Dates: start: 20220613, end: 20220613

REACTIONS (5)
  - Thrombocytopenia [Recovered/Resolved]
  - Pulmonary tuberculosis [Fatal]
  - Anaemia [Recovered/Resolved]
  - Febrile neutropenia [Recovered/Resolved]
  - Thrombocytopenia [Not Recovered/Not Resolved]

NARRATIVE: CASE EVENT DATE: 20220607
